FAERS Safety Report 5066617-9 (Version None)
Quarter: 2006Q3

REPORT INFORMATION
  Report Type: 
  Country: None (occurrence: None)
  Receive Date: 20060726
  Receipt Date: 20060717
  Transmission Date: 20061208
  Serious: Yes (Hospitalization, Other)
  Sender: FDA-Public Use
  Company Number: 2006049773

PATIENT
  Age: 51 Year
  Sex: Female

DRUGS (5)
  1. ZOLOFT [Suspect]
     Indication: DRUG USE FOR UNKNOWN INDICATION
     Dosage: (1 IN 1 D), ORAL
     Route: 048
     Dates: start: 20020101, end: 20020101
  2. BENADRYL [Suspect]
     Indication: HYPERSENSITIVITY
     Dosage: 25 MG (25 MG, 1 IN 1 D), UNKNOWN
  3. BENADRYL [Suspect]
     Indication: NASAL CONGESTION
     Dosage: 25 MG (25 MG, 1 IN 1 D), UNKNOWN
  4. ANTIHISTAMINES (ANTIHISTAMINES) [Suspect]
     Indication: DRUG USE FOR UNKNOWN INDICATION
  5. ZYRTEC [Concomitant]

REACTIONS (4)
  - BLOOD PRESSURE INCREASED [None]
  - DRUG HYPERSENSITIVITY [None]
  - HEART RATE INCREASED [None]
  - WEIGHT DECREASED [None]
